FAERS Safety Report 7117225-7 (Version None)
Quarter: 2010Q4

REPORT INFORMATION
  Report Type: 
  Country: None (occurrence: None)
  Receive Date: 20101112
  Receipt Date: 20101101
  Transmission Date: 20110411
  Serious: Yes (Death)
  Sender: FDA-Public Use
  Company Number: 2010MA004103

PATIENT
  Age: 32 Year
  Sex: Male

DRUGS (8)
  1. OXYCODONE HCL [Suspect]
  2. LEVOPROME [Suspect]
  3. ALCOHOL (ETHANOL) [Suspect]
  4. FEVERALL [Suspect]
  5. OXYNORM [Concomitant]
  6. OMEPRAZOLE [Concomitant]
  7. DEXAMETHASONE [Concomitant]
  8. PREV MEDS [Concomitant]

REACTIONS (3)
  - HYPOTHERMIA [None]
  - LOSS OF CONSCIOUSNESS [None]
  - OVERDOSE [None]
